FAERS Safety Report 24690118 (Version 2)
Quarter: 2024Q4

REPORT INFORMATION
  Report Type: Spontaneous
  Country: DE (occurrence: DE)
  Receive Date: 20241203
  Receipt Date: 20241211
  Transmission Date: 20250115
  Serious: Yes (Death, Hospitalization)
  Sender: GENMAB
  Company Number: DE-ABBVIE-6027797

PATIENT
  Age: 45 Year
  Sex: Male

DRUGS (4)
  1. EPCORITAMAB [Suspect]
     Active Substance: EPCORITAMAB
     Indication: Diffuse large B-cell lymphoma
     Dosage: 48 MILLIGRAM
     Route: 058
     Dates: start: 202409
  2. DIPHENHYDRAMINE HYDROCHLORIDE [Concomitant]
     Active Substance: DIPHENHYDRAMINE HYDROCHLORIDE
     Indication: Product used for unknown indication
     Dosage: UNK
     Route: 065
  3. ACETAMINOPHEN [Concomitant]
     Active Substance: ACETAMINOPHEN
     Indication: Product used for unknown indication
     Dosage: UNK
     Route: 065
  4. DEXAMETHASONE [Concomitant]
     Active Substance: DEXAMETHASONE
     Indication: Product used for unknown indication
     Dosage: UNK
     Route: 065

REACTIONS (11)
  - Death [Fatal]
  - Multiple organ dysfunction syndrome [Unknown]
  - Hospitalisation [Unknown]
  - Sepsis [Unknown]
  - Sedation [Unknown]
  - Tumour ulceration [Unknown]
  - Anxiety [Unknown]
  - Delirium [Unknown]
  - Palliative care [Unknown]
  - Pain [Unknown]
  - Thrombocytopenia [Unknown]

NARRATIVE: CASE EVENT DATE: 20240101
